FAERS Safety Report 8777291 (Version 1)
Quarter: 2012Q4

REPORT INFORMATION
  Report Type: 
  Country: US (occurrence: US)
  Receive Date: 20120910
  Receipt Date: 20120910
  Transmission Date: 20130627
  Serious: Yes (Other)
  Sender: FDA-Public Use
  Company Number: US-ASTRAZENECA-2012SE46657

PATIENT
  Age: 59 Year
  Sex: Female
  Weight: 59 kg

DRUGS (23)
  1. NEXIUM [Suspect]
     Indication: COLITIS ULCERATIVE
     Route: 048
  2. NEXIUM [Suspect]
     Indication: GASTRITIS
     Route: 048
  3. NEXIUM [Suspect]
     Indication: GASTROINTESTINAL TRACT IRRITATION
     Route: 048
  4. NEXIUM [Suspect]
     Indication: GASTROOESOPHAGEAL REFLUX DISEASE
     Route: 048
  5. NEXIUM [Suspect]
     Indication: COLITIS ULCERATIVE
     Route: 048
  6. NEXIUM [Suspect]
     Indication: GASTRITIS
     Route: 048
  7. NEXIUM [Suspect]
     Indication: GASTROINTESTINAL TRACT IRRITATION
     Route: 048
  8. NEXIUM [Suspect]
     Indication: GASTROOESOPHAGEAL REFLUX DISEASE
     Route: 048
  9. NEXIUM [Suspect]
     Indication: COLITIS ULCERATIVE
     Dosage: 20 mg once in the morning and once at night
     Route: 048
  10. NEXIUM [Suspect]
     Indication: GASTRITIS
     Dosage: 20 mg once in the morning and once at night
     Route: 048
  11. NEXIUM [Suspect]
     Indication: GASTROINTESTINAL TRACT IRRITATION
     Dosage: 20 mg once in the morning and once at night
     Route: 048
  12. NEXIUM [Suspect]
     Indication: GASTROOESOPHAGEAL REFLUX DISEASE
     Dosage: 20 mg once in the morning and once at night
     Route: 048
  13. TRICOR [Concomitant]
     Indication: CARDIAC DISORDER
  14. ZOLOFT [Concomitant]
     Indication: DEPRESSION
  15. VALIUM [Concomitant]
     Indication: DEPRESSION
  16. CARAFATE [Concomitant]
     Indication: DEPRESSION
     Dosage: AS REQUIRED
  17. LYRICA [Concomitant]
     Indication: INTERVERTEBRAL DISC PROTRUSION
  18. ELAVIL [Concomitant]
     Indication: SLEEP DISORDER
     Dosage: AT NIGHT
  19. VIVELLE [Concomitant]
     Indication: HORMONE REPLACEMENT THERAPY
  20. ROWASA [Concomitant]
     Indication: PROPHYLAXIS
  21. CLONIDINE [Concomitant]
  22. SUPPLEMENTS [Concomitant]
  23. CORGARD [Concomitant]
     Indication: CARDIAC DISORDER

REACTIONS (6)
  - Intervertebral disc disorder [Unknown]
  - Abdominal discomfort [Unknown]
  - Headache [Unknown]
  - Off label use [Unknown]
  - Drug effect incomplete [Unknown]
  - Drug ineffective [Unknown]
